FAERS Safety Report 12850081 (Version 2)
Quarter: 2016Q4

REPORT INFORMATION
  Report Type: Report from Study
  Country: NL (occurrence: NL)
  Receive Date: 20161014
  Receipt Date: 20161031
  Transmission Date: 20170207
  Serious: Yes (Other)
  Sender: FDA-Public Use
  Company Number: NL-BAYER-2015-153298

PATIENT
  Age: 38 Year
  Sex: Female

DRUGS (2)
  1. BETAFERON [Suspect]
     Active Substance: INTERFERON BETA-1B
     Dosage: UNK
  2. BETACONNECT [Suspect]
     Active Substance: DEVICE

REACTIONS (3)
  - Gait disturbance [Recovered/Resolved]
  - Injection site erythema [None]
  - Influenza [None]

NARRATIVE: CASE EVENT DATE: 201510
